FAERS Safety Report 4555016-1 (Version None)
Quarter: 2004Q4

REPORT INFORMATION
  Report Type: 
  Country: None (occurrence: None)
  Receive Date: 20041217
  Receipt Date: 20040827
  Transmission Date: 20050328
  Serious: No
  Sender: FDA-Public Use
  Company Number: 2004-BP-07383BP(0)

PATIENT
  Age: 73 Year
  Sex: Male

DRUGS (10)
  1. SPIRIVA [Suspect]
     Indication: CHRONIC OBSTRUCTIVE AIRWAYS DISEASE
     Dosage: 18 MCG (18 MCG, QD), IH
     Dates: start: 20040601
  2. ALBUTEROL [Concomitant]
  3. ACETYLSALICYLIC ACID SRT [Concomitant]
  4. DIGATECK [Concomitant]
  5. LIPITOR [Concomitant]
  6. RISPERDAL [Concomitant]
  7. COUMADIN [Concomitant]
  8. VERAPAMIL [Concomitant]
  9. ARICEPT [Concomitant]
  10. FOLIC ACID [Concomitant]

REACTIONS (2)
  - DYSPNOEA [None]
  - PALLOR [None]
